FAERS Safety Report 4345157-6 (Version None)
Quarter: 2004Q2

REPORT INFORMATION
  Report Type: 
  Country: None (occurrence: None)
  Receive Date: 20040420
  Receipt Date: 20040414
  Transmission Date: 20050107
  Serious: Yes (Other)
  Sender: FDA-Public Use
  Company Number: IT-JNJFOC-20040403039

PATIENT
  Age: 65 Year

DRUGS (2)
  1. REOPRO [Suspect]
     Indication: ACUTE MYOCARDIAL INFARCTION
     Dosage: INTRAVENOUS
     Route: 042
  2. RETEVASE [Suspect]
     Indication: ACUTE MYOCARDIAL INFARCTION
     Dosage: INTRAVENOUS
     Route: 042

REACTIONS (2)
  - CARDIAC FAILURE CONGESTIVE [None]
  - PULMONARY OEDEMA [None]
